FAERS Safety Report 6142199-5 (Version None)
Quarter: 2009Q2

REPORT INFORMATION
  Report Type: 
  Country: None (occurrence: None)
  Receive Date: 20090403
  Receipt Date: 20080512
  Transmission Date: 20091009
  Serious: Yes (Death)
  Sender: FDA-Public Use
  Company Number: US-ASTRAZENECA-2006UW22860

PATIENT
  Sex: Male

DRUGS (29)
  1. SEROQUEL [Suspect]
     Indication: SCHIZOPHRENIA
     Route: 048
     Dates: start: 20030101, end: 20060101
  2. SEROQUEL [Suspect]
     Indication: DEPRESSION
     Route: 048
     Dates: start: 20030101, end: 20060101
  3. SEROQUEL [Suspect]
     Indication: BIPOLAR DISORDER
     Route: 048
     Dates: start: 20030101, end: 20060101
  4. SEROQUEL [Suspect]
     Indication: INSOMNIA
     Route: 048
     Dates: start: 20030101, end: 20060101
  5. SEROQUEL [Suspect]
     Route: 048
     Dates: start: 20040114
  6. SEROQUEL [Suspect]
     Route: 048
     Dates: start: 20040114
  7. SEROQUEL [Suspect]
     Route: 048
     Dates: start: 20040114
  8. SEROQUEL [Suspect]
     Route: 048
     Dates: start: 20040114
  9. SALSALATE [Concomitant]
     Dates: start: 20030102
  10. HYDROXYZ PAM [Concomitant]
     Dates: start: 20040206
  11. MAG-SR [Concomitant]
     Dates: start: 20030103
  12. TRAZODONE [Concomitant]
     Dates: start: 20040206
  13. LOTREL [Concomitant]
     Dates: start: 20030525
  14. BUSPIRONE HCL [Concomitant]
     Dates: start: 20030123
  15. ZITHROMAX [Concomitant]
     Dates: start: 20030630
  16. TOPROL-XL [Concomitant]
     Dates: start: 20030722
  17. ZYPREXA [Concomitant]
     Dates: start: 20030102
  18. AMBIEN [Concomitant]
     Dates: start: 20030220
  19. ACIPHEX [Concomitant]
     Dates: start: 20030902
  20. CLOTRIM/BETAMETH [Concomitant]
     Dates: start: 20040209
  21. QUININE SUL [Concomitant]
     Dates: start: 20040623
  22. ELIDEL 1% C [Concomitant]
     Dates: start: 20040802
  23. SILVER SULFADIAZ [Concomitant]
     Dates: start: 20050425
  24. CLONAZEPAM [Concomitant]
     Dates: start: 20050502
  25. NEXIUM [Concomitant]
     Dates: start: 20050606
  26. ACETAMINOPHEN AND HYDROCODONE BITARTRATE [Concomitant]
     Dates: start: 20060306
  27. CYTUSS HC [Concomitant]
     Dates: start: 20060306
  28. DOXYCYCLINE [Concomitant]
     Dates: start: 20030121
  29. ZOLOFT [Concomitant]
     Dates: start: 20030123

REACTIONS (2)
  - DEATH [None]
  - HYPERGLYCAEMIA [None]
